FAERS Safety Report 16904168 (Version 4)
Quarter: 2020Q1

REPORT INFORMATION
  Report Type: Report from Study
  Country: CA (occurrence: CA)
  Receive Date: 20191010
  Receipt Date: 20200213
  Transmission Date: 20200409
  Serious: Yes (Other)
  Sender: FDA-Public Use
  Company Number: CA-009507513-1906CAN008822

PATIENT
  Age: 50 Year
  Sex: Male
  Weight: 86.5 kg

DRUGS (6)
  1. PEMBROLIZUMAB. [Suspect]
     Active Substance: PEMBROLIZUMAB
     Dosage: 200 MILLIGRAM, Q3W, STRENGTH: 2 MG/KG
     Dates: start: 20190621
  2. PEMBROLIZUMAB. [Suspect]
     Active Substance: PEMBROLIZUMAB
     Dosage: 200 MILLIGRAM, Q3W, STRENGTH: 2 MG/KG
     Route: 042
     Dates: start: 20190621
  3. PEMBROLIZUMAB. [Suspect]
     Active Substance: PEMBROLIZUMAB
     Dosage: 200 MILLIGRAM, Q3W, STRENGTH: 2 MG/KG
     Route: 042
     Dates: start: 20190621
  4. PEMBROLIZUMAB. [Suspect]
     Active Substance: PEMBROLIZUMAB
     Indication: MALIGNANT MELANOMA
     Dosage: 200 MILLIGRAM, Q3W, STRENGTH: 2 MG/KG
     Route: 042
     Dates: start: 20190621
  5. PEMBROLIZUMAB. [Suspect]
     Active Substance: PEMBROLIZUMAB
     Dosage: 200 MILLIGRAM, Q3W, STRENGTH: 2 MG/KG
     Route: 042
     Dates: start: 20190621
  6. PEMBROLIZUMAB. [Suspect]
     Active Substance: PEMBROLIZUMAB
     Dosage: 200 MILLIGRAM, Q3W, STRENGTH: 2 MG/KG
     Route: 042
     Dates: start: 20190621

REACTIONS (24)
  - Heart rate abnormal [Unknown]
  - Blood pressure increased [Unknown]
  - Diarrhoea [Unknown]
  - Hypertensive crisis [Unknown]
  - Heart rate abnormal [Unknown]
  - Blood pressure increased [Unknown]
  - Diarrhoea [Unknown]
  - Pulse abnormal [Unknown]
  - Blood pressure increased [Unknown]
  - Blood pressure increased [Unknown]
  - Dyspnoea [Unknown]
  - Diarrhoea [Unknown]
  - Hypertension [Unknown]
  - Inappropriate schedule of product administration [Unknown]
  - Blood pressure increased [Unknown]
  - Fatigue [Unknown]
  - Diarrhoea [Unknown]
  - Hypertensive crisis [Unknown]
  - Hypothyroidism [Unknown]
  - Fatigue [Unknown]
  - Bradycardia [Unknown]
  - Pulse abnormal [Unknown]
  - Pulse abnormal [Unknown]
  - Malaise [Unknown]

NARRATIVE: CASE EVENT DATE: 2019
